FAERS Safety Report 4991945-2 (Version None)
Quarter: 2006Q2

REPORT INFORMATION
  Report Type: 
  Country: None (occurrence: None)
  Receive Date: 20060504
  Receipt Date: 20051026
  Transmission Date: 20061013
  Serious: Yes (Hospitalization, Other)
  Sender: FDA-Public Use
  Company Number: US-MERCK-0510USA09501

PATIENT
  Age: 75 Year
  Sex: Female
  Weight: 80 kg

DRUGS (2)
  1. VIOXX [Suspect]
     Indication: ARTHRITIS
     Route: 048
     Dates: start: 20020614, end: 20021115
  2. VIOXX [Suspect]
     Route: 048
     Dates: start: 20020614, end: 20021115

REACTIONS (14)
  - ARTERIOSCLEROSIS [None]
  - ARTERIOSCLEROSIS CORONARY ARTERY [None]
  - ATRIAL FIBRILLATION [None]
  - BLOOD PRESSURE DECREASED [None]
  - BLOOD PRESSURE INCREASED [None]
  - CEREBROVASCULAR ACCIDENT [None]
  - CORONARY ARTERY DISEASE [None]
  - DYSLIPIDAEMIA [None]
  - LOW CARDIAC OUTPUT SYNDROME [None]
  - MYOCARDIAL INFARCTION [None]
  - OVARIAN CANCER [None]
  - PERICARDIAL EFFUSION [None]
  - SINUS ARRHYTHMIA [None]
  - SYNCOPE [None]
